FAERS Safety Report 9854081 (Version 2)
Quarter: 2014Q1

REPORT INFORMATION
  Report Type: Spontaneous
  Country: US (occurrence: US)
  Receive Date: 20140129
  Receipt Date: 20140317
  Transmission Date: 20141002
  Serious: Yes (Death, Hospitalization, Other)
  Sender: FDA-Public Use
  Company Number: US-GILEAD-2014-0093237

PATIENT
  Sex: Female

DRUGS (18)
  1. LETAIRIS [Suspect]
     Indication: PULMONARY ARTERIAL HYPERTENSION
     Dosage: 5 MG, QD
     Route: 048
     Dates: start: 20131106
  2. LETAIRIS [Suspect]
     Indication: UNEVALUABLE EVENT
  3. LETAIRIS [Suspect]
     Indication: UNEVALUABLE EVENT
  4. PROCRIT                            /00909301/ [Concomitant]
  5. FERROUS SULFATE [Concomitant]
  6. FUROSEMIDE [Concomitant]
  7. SPIRONOLACTONE [Concomitant]
  8. POTASSIUM [Concomitant]
  9. TRAZODONE [Concomitant]
  10. ZANTAC [Concomitant]
  11. TRIMETHOPRIM [Concomitant]
  12. METOPROLOL [Concomitant]
  13. TRAMADOL [Concomitant]
  14. ASPIRIN [Concomitant]
  15. SPIRIVA [Concomitant]
  16. ZOCOR [Concomitant]
  17. PROAIR HFA [Concomitant]
  18. SYMBICORT [Concomitant]

REACTIONS (2)
  - Sepsis [Fatal]
  - Pneumonia [Fatal]
